FAERS Safety Report 4979322-1 (Version None)
Quarter: 2006Q2

REPORT INFORMATION
  Report Type: 
  Country: None (occurrence: None)
  Receive Date: 20060421
  Receipt Date: 20060410
  Transmission Date: 20061013
  Serious: Yes (Hospitalization)
  Sender: FDA-Public Use
  Company Number: US-MERCK-0604USA02102

PATIENT
  Age: 85 Year
  Sex: Female
  Weight: 88 kg

DRUGS (4)
  1. VIOXX [Suspect]
     Indication: ARTHRITIS
     Route: 048
     Dates: start: 20040322
  2. ZOLOFT [Concomitant]
     Route: 065
  3. HYDROCHLOROTHIAZIDE [Concomitant]
     Route: 065
  4. NORVASC [Concomitant]
     Route: 065

REACTIONS (2)
  - CARDIAC DISORDER [None]
  - CEREBROVASCULAR ACCIDENT [None]
